FAERS Safety Report 10573042 (Version 1)
Quarter: 2014Q4

REPORT INFORMATION
  Report Type: Spontaneous
  Country: IE (occurrence: None)
  Receive Date: 20141106
  Receipt Date: 20141106
  Transmission Date: 20150529
  Serious: Yes (Hospitalization)
  Sender: FDA-Public Use
  Company Number: IPC201410-000582

PATIENT
  Age: 33 Year
  Sex: Male

DRUGS (3)
  1. AZATHIOPRINE (AZATHIOPRINE) (AZATHIOPRINE) [Suspect]
     Active Substance: AZATHIOPRINE
  2. PREDNISOLONE (PREDNISOLONE) (PREDNISOLONE) [Suspect]
     Active Substance: PREDNISOLONE
     Indication: ARTHRALGIA
  3. WARFARIN (WARFARIN) (WARFARIN) [Suspect]
     Active Substance: WARFARIN
     Indication: DEEP VEIN THROMBOSIS

REACTIONS (9)
  - Haemoptysis [None]
  - Streptococcal sepsis [None]
  - International normalised ratio increased [None]
  - Streptococcus test positive [None]
  - Tachycardia [None]
  - Chest pain [None]
  - Hypotension [None]
  - Multi-organ failure [None]
  - General physical health deterioration [None]
